FAERS Safety Report 4459401-8 (Version None)
Quarter: 2004Q3

REPORT INFORMATION
  Report Type: 
  Country: None (occurrence: None)
  Receive Date: 20040927
  Receipt Date: 20040816
  Transmission Date: 20050211
  Serious: Yes (Hospitalization)
  Sender: FDA-Public Use
  Company Number: US-GLAXOSMITHKLINE-A0523009A

PATIENT
  Age: 15 Year
  Sex: Female

DRUGS (1)
  1. PAXIL [Suspect]
     Indication: DEPRESSION
     Route: 048
     Dates: start: 20000101, end: 20030106

REACTIONS (6)
  - DRUG WITHDRAWAL SYNDROME [None]
  - EMOTIONAL DISTRESS [None]
  - FEELING ABNORMAL [None]
  - HOMICIDAL IDEATION [None]
  - OBSESSIVE THOUGHTS [None]
  - PSYCHIATRIC SYMPTOM [None]
